FAERS Safety Report 8825858 (Version 1)
Quarter: 2012Q4

REPORT INFORMATION
  Report Type: 
  Country: US (occurrence: US)
  Receive Date: 20121004
  Receipt Date: 20121004
  Transmission Date: 20130627
  Serious: No
  Sender: FDA-Public Use
  Company Number: US-009507513-1210USA000394

PATIENT
  Sex: Female

DRUGS (7)
  1. JANUVIA [Suspect]
     Dosage: 100 mg, qd
     Route: 048
  2. CALTRATE WITH VITAMIN D [Suspect]
     Dosage: UNK, bid
     Route: 048
  3. HUMULIN [Suspect]
     Dosage: 15 units morning - 20 units at night
  4. SPIRONOLACTONE [Suspect]
     Dosage: 100 mg, qd
  5. CRESTOR [Suspect]
     Dosage: 20 mg, UNK
  6. CARVEDILOL [Suspect]
     Dosage: 25 mg, bid
  7. ASPIRIN [Suspect]
     Dosage: 325 mg, qd

REACTIONS (4)
  - Gait disturbance [Unknown]
  - Dizziness [Unknown]
  - Headache [Unknown]
  - Blood pressure increased [Unknown]
